FAERS Safety Report 7416283-X (Version None)
Quarter: 2011Q2

REPORT INFORMATION
  Report Type: 
  Country: None (occurrence: None)
  Receive Date: 20110414
  Receipt Date: 20110411
  Transmission Date: 20111010
  Serious: Yes (Death, Hospitalization)
  Sender: FDA-Public Use
  Company Number: US-ELI_LILLY_AND_COMPANY-US201101005693

PATIENT
  Sex: Female

DRUGS (1)
  1. EFFIENT [Suspect]
     Dates: end: 20110121

REACTIONS (1)
  - DEATH [None]
